FAERS Safety Report 16393065 (Version 1)
Quarter: 2019Q2

REPORT INFORMATION
  Report Type: Other
  Country: GB (occurrence: GB)
  Receive Date: 20190605
  Receipt Date: 20190605
  Transmission Date: 20190711
  Serious: Yes (Hospitalization)
  Sender: FDA-Public Use
  Company Number: GB-LUPIN PHARMACEUTICALS INC.-2019-03439

PATIENT
  Age: 28 Year
  Sex: Male

DRUGS (3)
  1. SERTRALINE [Suspect]
     Active Substance: SERTRALINE HYDROCHLORIDE
     Indication: DEPRESSION
     Dosage: 50 MILLIGRAM, QD
     Route: 065
  2. HYPERICUM PERFORATUM [Interacting]
     Active Substance: HYPERICUM PERFORATUM
     Indication: DEPRESSION
     Dosage: UNK
     Route: 065
  3. TESTOSTERONE. [Concomitant]
     Active Substance: TESTOSTERONE
     Indication: BILATERAL ORCHIDECTOMY
     Route: 065

REACTIONS (2)
  - Mania [Unknown]
  - Drug interaction [Unknown]
